FAERS Safety Report 4705569-5 (Version None)
Quarter: 2005Q2

REPORT INFORMATION
  Report Type: 
  Country: None (occurrence: None)
  Receive Date: 20050629
  Receipt Date: 20040901
  Transmission Date: 20051028
  Serious: Yes (Death, Other)
  Sender: FDA-Public Use
  Company Number: 200418565GDDC

PATIENT
  Age: 40 Year
  Sex: Male
  Weight: 95 kg

DRUGS (11)
  1. HEPARIN [Suspect]
     Indication: MYOCARDIAL INFARCTION
     Dosage: ONCE IVB
     Route: 040
     Dates: start: 20040804, end: 20040808
  2. HEPARIN SODIUM [Suspect]
     Indication: MYOCARDIAL INFARCTION
     Dosage: HEP1400 UNITS/HOUR U CONT IVF
     Route: 042
     Dates: start: 20040804, end: 20040804
  3. ALTEPLASE SOLUTION FOR INFUSION [Suspect]
     Indication: MYOCARDIAL INFARCTION
     Dosage: 100MG/DAY IV
     Route: 042
     Dates: start: 20040804, end: 20040807
  4. ASPIRIN [Suspect]
     Indication: MYOCARDIAL INFARCTION
     Dosage: 160 MG/DAY PO
     Route: 048
     Dates: start: 20040804, end: 20040807
  5. NITROGLYCERIN [Concomitant]
  6. METOPROLOL [Concomitant]
  7. DICLOFENAC SODIUM [Concomitant]
  8. SIMVASTATIN [Concomitant]
  9. TRIMETAZIDINE [Concomitant]
  10. CAPTOPRIL [Concomitant]
  11. HYDROCHLOROTHIAZIDE [Concomitant]

REACTIONS (12)
  - AGGRESSION [None]
  - ANGIOPATHY [None]
  - CARDIAC ARREST [None]
  - CARDIAC TAMPONADE [None]
  - CORONARY ARTERY THROMBOSIS [None]
  - DELIRIUM [None]
  - MYOCARDIAL ISCHAEMIA [None]
  - MYOCARDIAL RUPTURE [None]
  - NEGATIVISM [None]
  - NON-CARDIAC CHEST PAIN [None]
  - PSYCHOTIC DISORDER [None]
  - THERAPY NON-RESPONDER [None]
